FAERS Safety Report 25477265 (Version 1)
Quarter: 2025Q2

REPORT INFORMATION
  Report Type: Report from Study
  Country: CA (occurrence: CA)
  Receive Date: 20250625
  Receipt Date: 20250625
  Transmission Date: 20250716
  Serious: Yes (Other)
  Sender: NOVARTIS
  Company Number: CA-002147023-NVSC2025CA021844

PATIENT
  Age: 68 Year
  Sex: Female

DRUGS (3)
  1. KESIMPTA [Suspect]
     Active Substance: OFATUMUMAB
     Indication: Relapsing-remitting multiple sclerosis
     Dosage: 20 MG, QMO
     Route: 058
     Dates: start: 20241128
  2. KESIMPTA [Suspect]
     Active Substance: OFATUMUMAB
     Dosage: 20 MG, QW
     Route: 058
     Dates: start: 20250126, end: 20250204
  3. KESIMPTA [Suspect]
     Active Substance: OFATUMUMAB
     Route: 065
     Dates: end: 20250426

REACTIONS (16)
  - Angina pectoris [Unknown]
  - Back pain [Recovered/Resolved]
  - Grip strength decreased [Unknown]
  - Back pain [Recovered/Resolved]
  - Abdominal distension [Recovered/Resolved]
  - Fatigue [Unknown]
  - Renal pain [Unknown]
  - Burning sensation [Recovered/Resolved]
  - Constipation [Unknown]
  - Insomnia [Unknown]
  - Dizziness [Unknown]
  - Nausea [Unknown]
  - Micturition disorder [Unknown]
  - Abdominal distension [Unknown]
  - Abdominal pain [Unknown]
  - Migraine [Unknown]

NARRATIVE: CASE EVENT DATE: 20241128
